FAERS Safety Report 13384012 (Version 1)
Quarter: 2017Q1

REPORT INFORMATION
  Report Type: Spontaneous
  Country: US (occurrence: US)
  Receive Date: 20170329
  Receipt Date: 20170329
  Transmission Date: 20170429
  Serious: No
  Sender: FDA-Public Use
  Company Number: US-MAYNE PHARMA-2016MYN001865

PATIENT
  Sex: Female

DRUGS (1)
  1. TAMOXIFEN CITRATE. [Suspect]
     Active Substance: TAMOXIFEN CITRATE
     Indication: BREAST CANCER
     Dates: start: 201202, end: 20160202

REACTIONS (7)
  - Pain [Unknown]
  - Dry mouth [Unknown]
  - Amnesia [Unknown]
  - Dry skin [Unknown]
  - Headache [Unknown]
  - Product quality issue [Unknown]
  - Joint stiffness [Unknown]

NARRATIVE: CASE EVENT DATE: 201601
